FAERS Safety Report 20022585 (Version 1)
Quarter: 2021Q4

REPORT INFORMATION
  Report Type: Spontaneous
  Country: CA (occurrence: CA)
  Receive Date: 20211102
  Receipt Date: 20211102
  Transmission Date: 20220304
  Serious: Yes (Other)
  Sender: FDA-Public Use
  Company Number: CA-SUN PHARMACEUTICAL INDUSTRIES LTD-2021R1-316031

PATIENT
  Age: 78 Year
  Sex: Female

DRUGS (2)
  1. PAROXETINE [Suspect]
     Active Substance: PAROXETINE
     Indication: Cataplexy
     Dosage: UNK
     Route: 065
  2. PITOLISANT [Suspect]
     Active Substance: PITOLISANT
     Indication: Cataplexy
     Dosage: 18 MILLIGRAM
     Route: 065

REACTIONS (1)
  - Condition aggravated [Unknown]
